FAERS Safety Report 6396065-0 (Version None)
Quarter: 2009Q4

REPORT INFORMATION
  Report Type: 
  Country: None (occurrence: None)
  Receive Date: 20091009
  Receipt Date: 20090928
  Transmission Date: 20100525
  Serious: Yes (Hospitalization)
  Sender: FDA-Public Use
  Company Number: IT-WATSON-2009-08067

PATIENT
  Age: 79 Year
  Sex: Male

DRUGS (2)
  1. MICROZIDE (WATSON LABORATORIES) [Suspect]
     Indication: HYPERTENSION
     Dosage: 25 MG, UNKNOWN
  2. OXCARBAZEPINE [Suspect]
     Indication: CONVULSION
     Dosage: UNK

REACTIONS (1)
  - INAPPROPRIATE ANTIDIURETIC HORMONE SECRETION [None]
